FAERS Safety Report 21684178 (Version 1)
Quarter: 2022Q4

REPORT INFORMATION
  Report Type: Spontaneous
  Country: US (occurrence: US)
  Receive Date: 20221205
  Receipt Date: 20221205
  Transmission Date: 20230113
  Serious: No
  Sender: FDA-Public Use
  Company Number: US-MYLANLABS-2022M1094001

PATIENT
  Age: 41 Year
  Sex: Male

DRUGS (1)
  1. SEMGLEE (INSULIN GLARGINE-YFGN) [Suspect]
     Active Substance: INSULIN GLARGINE-YFGN
     Indication: Type 2 diabetes mellitus
     Dosage: 62 INTERNATIONAL UNIT, QD,ONCE A DAY.
     Route: 058
     Dates: start: 20220818

REACTIONS (3)
  - Device mechanical issue [Unknown]
  - Product quality issue [Unknown]
  - Lipohypertrophy [Unknown]

NARRATIVE: CASE EVENT DATE: 20220818
